FAERS Safety Report 6571018-8 (Version None)
Quarter: 2010Q1

REPORT INFORMATION
  Report Type: 
  Country: None (occurrence: None)
  Receive Date: 20100204
  Receipt Date: 20100128
  Transmission Date: 20100710
  Serious: Yes (Death)
  Sender: FDA-Public Use
  Company Number: US-AMGEN-QUU389034

PATIENT
  Sex: Male

DRUGS (5)
  1. NPLATE [Suspect]
     Indication: IDIOPATHIC THROMBOCYTOPENIC PURPURA
     Dates: start: 20081223
  2. CORTICOSTEROID NOS [Concomitant]
  3. IMMU-G [Concomitant]
  4. FLUDARABINE [Concomitant]
  5. RITUXIMAB [Concomitant]

REACTIONS (1)
  - DEATH [None]
